FAERS Safety Report 8718798 (Version 2)
Quarter: 2013Q4

REPORT INFORMATION
  Report Type: Spontaneous
  Country: US (occurrence: US)
  Receive Date: 20120810
  Receipt Date: 20131101
  Transmission Date: 20140711
  Serious: No
  Sender: FDA-Public Use
  Company Number: US-009507513-1208USA003727

PATIENT
  Age: 23 Year
  Sex: Female
  Weight: 120.18 kg

DRUGS (1)
  1. IMPLANON [Suspect]
     Indication: CONTRACEPTION
     Dosage: 1 DF, UNK
     Route: 059
     Dates: start: 20111230, end: 20120623

REACTIONS (2)
  - Pain in extremity [Recovered/Resolved]
  - Device breakage [Recovered/Resolved]
